FAERS Safety Report 6463760-4 (Version None)
Quarter: 2009Q4

REPORT INFORMATION
  Report Type: 
  Country: None (occurrence: None)
  Receive Date: 20091201
  Receipt Date: 20091201
  Transmission Date: 20100525
  Serious: Yes (Other)
  Sender: FDA-Public Use
  Company Number: US-ABBOTT-09P-163-0610392-00

PATIENT
  Weight: 57.204 kg

DRUGS (4)
  1. KALETRA [Suspect]
     Indication: HIV INFECTION
     Dates: start: 20070101, end: 20091002
  2. BONIVA [Concomitant]
     Indication: BONE DENSITY DECREASED
  3. FEXOFENADINE [Concomitant]
     Indication: HYPERSENSITIVITY
  4. FAMOTIDINE [Concomitant]
     Indication: GASTROOESOPHAGEAL REFLUX DISEASE

REACTIONS (13)
  - ABDOMINAL DISTENSION [None]
  - ABDOMINAL PAIN [None]
  - BREAST TENDERNESS [None]
  - CHROMATURIA [None]
  - DYSPNOEA [None]
  - HEPATIC FAILURE [None]
  - LIVER DISORDER [None]
  - LOCALISED INTRAABDOMINAL FLUID COLLECTION [None]
  - MUSCLE SPASMS [None]
  - OCULAR ICTERUS [None]
  - OEDEMA PERIPHERAL [None]
  - VAGINAL HAEMORRHAGE [None]
  - WEIGHT INCREASED [None]
